FAERS Safety Report 8380395-7 (Version None)
Quarter: 2012Q2

REPORT INFORMATION
  Report Type: 
  Country: None (occurrence: None)
  Receive Date: 20120523
  Receipt Date: 20120517
  Transmission Date: 20120825
  Serious: Yes (Hospitalization)
  Sender: FDA-Public Use
  Company Number: US-GLAXOSMITHKLINE-A0799753A

PATIENT
  Age: 54 Year
  Sex: Female
  Weight: 150 kg

DRUGS (6)
  1. ATENOLOL [Concomitant]
  2. AVANDIA [Suspect]
     Indication: TYPE 2 DIABETES MELLITUS
     Dosage: 8MG PER DAY
     Route: 048
     Dates: start: 19990101, end: 20070101
  3. EFFEXOR [Concomitant]
  4. NOVOLIN 70/30 [Concomitant]
  5. TRIAMTERENE AND HYDROCHLOROTHIAZIDE [Concomitant]
  6. GLUCOPHAGE [Concomitant]

REACTIONS (5)
  - OSTEOGENESIS IMPERFECTA [None]
  - FRACTURE [None]
  - MUSCLE SPASMS [None]
  - FRACTURED COCCYX [None]
  - MYOCARDIAL INFARCTION [None]
